FAERS Safety Report 5966080-7 (Version None)
Quarter: 2008Q4

REPORT INFORMATION
  Report Type: 
  Country: None (occurrence: None)
  Receive Date: 20081125
  Receipt Date: 20081113
  Transmission Date: 20090506
  Serious: Yes (Hospitalization, Other)
  Sender: FDA-Public Use
  Company Number: FR-ELI_LILLY_AND_COMPANY-FR200811002939

PATIENT
  Sex: Male

DRUGS (2)
  1. GEMZAR [Suspect]
     Indication: ADENOCARCINOMA PANCREAS
     Dosage: UNK, UNKNOWN (75%)
     Route: 042
     Dates: start: 20080301
  2. GEMZAR [Suspect]
     Dosage: UNK, UNKNOWN (50%)
     Route: 042

REACTIONS (2)
  - MUSCLE ATROPHY [None]
  - MYALGIA [None]
